FAERS Safety Report 15131308 (Version 24)
Quarter: 2022Q1

REPORT INFORMATION
  Report Type: Spontaneous
  Country: CA (occurrence: CA)
  Receive Date: 20180711
  Receipt Date: 20220209
  Transmission Date: 20220423
  Serious: Yes (Hospitalization, Other)
  Sender: FDA-Public Use
  Company Number: CA-PFIZER INC-2018228778

PATIENT
  Age: 60 Year
  Sex: Female

DRUGS (6)
  1. XELJANZ [Suspect]
     Active Substance: TOFACITINIB CITRATE
     Indication: Rheumatoid arthritis
     Dosage: 5 MG, 2X/DAY
     Route: 048
     Dates: start: 20180528, end: 20180614
  2. XELJANZ [Suspect]
     Active Substance: TOFACITINIB CITRATE
     Dosage: 5 MG, 2X/DAY
     Route: 048
     Dates: start: 20180703, end: 20180926
  3. XELJANZ [Suspect]
     Active Substance: TOFACITINIB CITRATE
     Dosage: 5 MG, 2X/DAY
     Route: 048
     Dates: start: 20181002, end: 20190706
  4. XELJANZ [Suspect]
     Active Substance: TOFACITINIB CITRATE
     Dosage: 5 MG, 2X/DAY
     Route: 048
     Dates: start: 20191022, end: 202008
  5. XELJANZ [Suspect]
     Active Substance: TOFACITINIB CITRATE
     Dosage: 5 MG, 2X/DAY
     Route: 048
     Dates: start: 20200817, end: 2021
  6. XELJANZ [Suspect]
     Active Substance: TOFACITINIB CITRATE
     Dosage: 5 MG 1 TABLET ON DAY 1, 1 TABLET ON DAY 2 AND 2 TABLETS ON DAY 3, THEN RESTART THE SERIES
     Route: 048
     Dates: start: 2021, end: 202106

REACTIONS (26)
  - Cellulitis [Recovered/Resolved]
  - Colitis microscopic [Not Recovered/Not Resolved]
  - Cellulitis [Unknown]
  - Drug ineffective [Unknown]
  - Fatigue [Unknown]
  - Vasculitis [Unknown]
  - Chills [Unknown]
  - Nausea [Recovered/Resolved]
  - Dizziness [Recovered/Resolved]
  - Vomiting [Recovered/Resolved]
  - Immune system disorder [Not Recovered/Not Resolved]
  - Tachypnoea [Not Recovered/Not Resolved]
  - Headache [Not Recovered/Not Resolved]
  - Dyspnoea [Not Recovered/Not Resolved]
  - Arthralgia [Not Recovered/Not Resolved]
  - Pain in extremity [Not Recovered/Not Resolved]
  - Phlebitis [Unknown]
  - Insomnia [Unknown]
  - Pollakiuria [Unknown]
  - Arthralgia [Unknown]
  - Nodule [Unknown]
  - Intestinal polyp [Unknown]
  - Discomfort [Unknown]
  - Wound [Not Recovered/Not Resolved]
  - COVID-19 [Unknown]
  - Off label use [Recovered/Resolved]

NARRATIVE: CASE EVENT DATE: 20180101
